FAERS Safety Report 9296898 (Version 2)
Quarter: 2013Q4

REPORT INFORMATION
  Report Type: Report from Study
  Country: US (occurrence: US)
  Receive Date: 20130517
  Receipt Date: 20131007
  Transmission Date: 20140711
  Serious: Yes (Life-Threatening)
  Sender: FDA-Public Use
  Company Number: US-009507513-1305USA010254

PATIENT
  Sex: 0

DRUGS (3)
  1. HEXADROL TABLETS [Suspect]
     Indication: PLASMA CELL MYELOMA
     Dosage: 40 MG, ON DAYS 1-4, 9-12 AND 40 MG, ON DAYS 17-20 FOR THE FIRST FOUR 28-D CYCLES
     Route: 048
  2. HEXADROL TABLETS [Suspect]
     Dosage: DAYS 1-4 THEREAFTER
     Route: 048
  3. SILTUXIMAB [Suspect]
     Indication: PLASMA CELL MYELOMA
     Dosage: 6 MG/KG, ON DAY 1 AND 15 OF A 28 DAY CYCLE
     Route: 042

REACTIONS (1)
  - Anaemia [Unknown]
